FAERS Safety Report 8838186 (Version 2)
Quarter: 2012Q4

REPORT INFORMATION
  Report Type: 
  Country: US (occurrence: US)
  Receive Date: 20121012
  Receipt Date: 20121123
  Transmission Date: 20130627
  Serious: No
  Sender: FDA-Public Use
  Company Number: US-PFIZER INC-2012253815

PATIENT
  Age: 65 Year
  Sex: Female
  Weight: 79.82 kg

DRUGS (8)
  1. LYRICA [Suspect]
     Indication: PARESTHESIA FOOT
     Dosage: 200 mg, 3x/day
     Route: 048
     Dates: start: 2011
  2. LYRICA [Suspect]
     Indication: BURNING FOOT
  3. BACLOFEN [Concomitant]
     Dosage: UNK
  4. CELEXA [Concomitant]
     Dosage: UNK
  5. KLONOPIN [Concomitant]
     Dosage: UNK
  6. FOSAMAX [Concomitant]
     Dosage: UNK
  7. METHADONE [Concomitant]
     Indication: PAIN
     Dosage: UNK
  8. TRAMADOL [Concomitant]
     Indication: PAIN
     Dosage: UNK

REACTIONS (3)
  - Off label use [Unknown]
  - Drug ineffective for unapproved indication [Unknown]
  - Pain [Unknown]
